FAERS Safety Report 25298747 (Version 1)
Quarter: 2025Q2

REPORT INFORMATION
  Report Type: Spontaneous
  Country: ES (occurrence: ES)
  Receive Date: 20250512
  Receipt Date: 20250512
  Transmission Date: 20250716
  Serious: Yes (Hospitalization, Other)
  Sender: BIOVITRUM
  Company Number: ES-BIOVITRUM-2025-ES-006346

PATIENT
  Age: 43 Year
  Sex: Female

DRUGS (2)
  1. AVATROMBOPAG [Suspect]
     Active Substance: AVATROMBOPAG
     Indication: Immune thrombocytopenia
     Route: 048
  2. AVATROMBOPAG [Suspect]
     Active Substance: AVATROMBOPAG
     Route: 048

REACTIONS (3)
  - Carotid artery occlusion [Recovered/Resolved]
  - Cerebral artery occlusion [Recovered/Resolved]
  - Aortic thrombosis [Recovered/Resolved]
